FAERS Safety Report 5031560-8 (Version None)
Quarter: 2006Q2

REPORT INFORMATION
  Report Type: 
  Country: None (occurrence: None)
  Receive Date: 20060621
  Receipt Date: 20060505
  Transmission Date: 20061013
  Serious: Yes (Hospitalization, Disabling, Other)
  Sender: FDA-Public Use
  Company Number: CA-GLAXOSMITHKLINE-A0605109A

PATIENT
  Age: 37 Year
  Sex: Female
  Weight: 180 kg

DRUGS (3)
  1. AMERGE [Suspect]
     Indication: MIGRAINE
     Dosage: 2.5MG SINGLE DOSE
     Route: 048
     Dates: start: 20060502, end: 20060502
  2. SIBELIUM [Concomitant]
  3. DEMEROL [Concomitant]

REACTIONS (5)
  - HYPOAESTHESIA [None]
  - HYPOAESTHESIA ORAL [None]
  - PAIN IN EXTREMITY [None]
  - SPEECH DISORDER [None]
  - SWOLLEN TONGUE [None]
